FAERS Safety Report 19310234 (Version 1)
Quarter: 2021Q2

REPORT INFORMATION
  Report Type: Spontaneous
  Country: CN (occurrence: CN)
  Receive Date: 20210526
  Receipt Date: 20210526
  Transmission Date: 20210717
  Serious: Yes (Other)
  Sender: FDA-Public Use
  Company Number: CN-PFIZER INC-2021545564

PATIENT
  Age: 66 Year
  Sex: Male
  Weight: 58 kg

DRUGS (7)
  1. PACLITAXEL. [Suspect]
     Active Substance: PACLITAXEL
     Indication: NEOPLASM
  2. CARBOPLATIN. [Suspect]
     Active Substance: CARBOPLATIN
     Indication: CHEMOTHERAPY
     Dosage: 550 MG, CYCLIC (D1)
     Route: 041
     Dates: start: 20210320
  3. PACLITAXEL. [Suspect]
     Active Substance: PACLITAXEL
     Indication: GASTRIC DISORDER
  4. CARBOPLATIN. [Suspect]
     Active Substance: CARBOPLATIN
     Indication: NEOPLASM
  5. CARBOPLATIN. [Suspect]
     Active Substance: CARBOPLATIN
     Indication: GASTRIC DISORDER
  6. PACLITAXEL. [Suspect]
     Active Substance: PACLITAXEL
     Indication: CHEMOTHERAPY
     Dosage: 200 MG, CYCLIC (D1, D8)
     Route: 041
     Dates: start: 20210320, end: 20210327
  7. SODIUM CHLORIDE. [Concomitant]
     Active Substance: SODIUM CHLORIDE
     Dosage: 550 ML
     Route: 041
     Dates: start: 20200320

REACTIONS (6)
  - Productive cough [Recovering/Resolving]
  - Tachypnoea [Recovering/Resolving]
  - Diarrhoea [Recovering/Resolving]
  - Condition aggravated [Recovering/Resolving]
  - Cough [Recovering/Resolving]
  - Nausea [Recovering/Resolving]

NARRATIVE: CASE EVENT DATE: 20210320
